FAERS Safety Report 15596153 (Version 3)
Quarter: 2021Q2

REPORT INFORMATION
  Report Type: Spontaneous
  Country: TW (occurrence: TW)
  Receive Date: 20181108
  Receipt Date: 20210618
  Transmission Date: 20210716
  Serious: Yes (Other)
  Sender: FDA-Public Use
  Company Number: TW-LUPIN PHARMACEUTICALS INC.-2018-07685

PATIENT
  Age: 55 Year
  Sex: Male

DRUGS (2)
  1. SIROLIMUS. [Interacting]
     Active Substance: SIROLIMUS
     Indication: IMMUNOSUPPRESSION
     Dosage: UNK
     Route: 065
  2. RIFABUTIN. [Suspect]
     Active Substance: RIFABUTIN
     Indication: PULMONARY TUBERCULOSIS
     Dosage: 300 MG, QD
     Route: 048

REACTIONS (2)
  - Drug interaction [Unknown]
  - Transplant rejection [Unknown]
